FAERS Safety Report 8137997-2 (Version None)
Quarter: 2012Q1

REPORT INFORMATION
  Report Type: 
  Country: None (occurrence: None)
  Receive Date: 20120215
  Receipt Date: 20120209
  Transmission Date: 20120608
  Serious: Yes (Death, Hospitalization)
  Sender: FDA-Public Use
  Company Number: MX-PFIZER INC-2012037098

PATIENT
  Sex: Female

DRUGS (2)
  1. VFEND [Suspect]
     Indication: CANDIDIASIS
  2. CASPOFUNGIN [Concomitant]

REACTIONS (1)
  - PATHOGEN RESISTANCE [None]
